FAERS Safety Report 4589541-4 (Version None)
Quarter: 2005Q1

REPORT INFORMATION
  Report Type: 
  Country: None (occurrence: None)
  Receive Date: 20050216
  Receipt Date: 20041111
  Transmission Date: 20050727
  Serious: Yes (Other)
  Sender: FDA-Public Use
  Company Number: 2004239671AT

PATIENT
  Age: 60 Year
  Sex: Male
  Weight: 86 kg

DRUGS (4)
  1. BEXTRA [Suspect]
     Indication: BACK PAIN
     Dosage: 20 MG (20 MG), ORAL
     Route: 048
     Dates: start: 20040818, end: 20040904
  2. ATORVASTATIN         (ATORVASTATIN) [Concomitant]
  3. ASPIRIN [Concomitant]
  4. CARVEDILOL [Concomitant]

REACTIONS (3)
  - BRONCHITIS [None]
  - CARDIAC FAILURE [None]
  - GASTRITIS [None]
